FAERS Safety Report 18986462 (Version 1)
Quarter: 2021Q1

REPORT INFORMATION
  Report Type: Spontaneous
  Country: JP (occurrence: JP)
  Receive Date: 20210309
  Receipt Date: 20210309
  Transmission Date: 20210420
  Serious: Yes (Hospitalization, Disabling, Other)
  Sender: FDA-Public Use
  Company Number: JP-009507513-2011JPN003651J

PATIENT
  Age: 70 Year
  Sex: Male
  Weight: 59 kg

DRUGS (4)
  1. KEYTRUDA [Suspect]
     Active Substance: PEMBROLIZUMAB
     Indication: LUNG ADENOCARCINOMA STAGE III
     Dosage: 200 MILLIGRAM, Q3W
     Route: 041
     Dates: start: 20190205, end: 20190730
  2. KEYTRUDA [Suspect]
     Active Substance: PEMBROLIZUMAB
     Dosage: 200 MILLIGRAM, Q3W
     Route: 041
     Dates: start: 20190910, end: 20200730
  3. CARBOPLATIN. [Suspect]
     Active Substance: CARBOPLATIN
     Indication: LUNG ADENOCARCINOMA STAGE III
     Dosage: 350 MILLIGRAM, Q3W
     Route: 051
     Dates: start: 20190205, end: 20190409
  4. PEMETREXED DISODIUM [Suspect]
     Active Substance: PEMETREXED DISODIUM
     Indication: LUNG ADENOCARCINOMA STAGE III
     Dosage: 700 MILLIGRAM, Q3W
     Route: 051
     Dates: start: 20190205, end: 20190709

REACTIONS (3)
  - Adrenocorticotropic hormone deficiency [Recovered/Resolved with Sequelae]
  - Neutropenia [Recovered/Resolved]
  - Immune-mediated hypothyroidism [Recovered/Resolved with Sequelae]

NARRATIVE: CASE EVENT DATE: 20190212
